FAERS Safety Report 15665828 (Version 1)
Quarter: 2018Q4

REPORT INFORMATION
  Report Type: Spontaneous
  Country: US (occurrence: US)
  Receive Date: 20181128
  Receipt Date: 20181128
  Transmission Date: 20190205
  Serious: No
  Sender: FDA-Public Use
  Company Number: US-TARO-2018TAR00106

PATIENT
  Age: 60 Year
  Sex: Female
  Weight: 40.82 kg

DRUGS (5)
  1. UNSPECIFIED THYROID MEDICATION [Concomitant]
     Active Substance: UNSPECIFIED INGREDIENT
  2. CARBAMAZEPINE TABLETS CHEWABLE USP 100MG [Suspect]
     Active Substance: CARBAMAZEPINE
     Indication: GLOSSOPHARYNGEAL NEURALGIA
     Dosage: UNK
     Route: 048
     Dates: start: 201109
  3. CARBAMAZEPINE TABLETS CHEWABLE USP 100MG [Suspect]
     Active Substance: CARBAMAZEPINE
     Indication: TRIGEMINAL NEURALGIA
     Dosage: 50 MG, 1X/DAY IN THE MORNING
     Route: 048
  4. CARBAMAZEPINE TABLETS CHEWABLE USP 100MG [Suspect]
     Active Substance: CARBAMAZEPINE
     Dosage: 25 MG, 1X/DAY IN THE EVENING
     Route: 048
  5. UNSPECIFIED BETA BLOCKER [Concomitant]
     Active Substance: UNSPECIFIED INGREDIENT

REACTIONS (12)
  - Weight decreased [Recovered/Resolved]
  - Dry eye [Recovered/Resolved]
  - Balance disorder [Recovered/Resolved]
  - Nausea [Recovered/Resolved]
  - Abdominal distension [Recovered/Resolved]
  - Mouth ulceration [Not Recovered/Not Resolved]
  - Tremor [Recovered/Resolved]
  - Eye movement disorder [Recovered/Resolved]
  - Somnolence [Recovered/Resolved]
  - Onychomadesis [Recovered/Resolved]
  - Memory impairment [Recovered/Resolved]
  - Injury corneal [Recovered/Resolved]

NARRATIVE: CASE EVENT DATE: 201109
